FAERS Safety Report 6021188-5 (Version None)
Quarter: 2008Q4

REPORT INFORMATION
  Report Type: 
  Country: None (occurrence: None)
  Receive Date: 20081229
  Receipt Date: 20081215
  Transmission Date: 20090506
  Serious: Yes (Disabling)
  Sender: FDA-Public Use
  Company Number: GB-PFIZER INC-2008157138

PATIENT

DRUGS (3)
  1. VARENICLINE TARTRATE [Suspect]
     Indication: SMOKING CESSATION THERAPY
     Dosage: 0.5 MG, 2X/DAY
     Route: 048
     Dates: start: 20081022, end: 20081029
  2. BECLOMETASONE DIPROPIONATE [Concomitant]
     Indication: ASTHMA
     Dosage: 2 DF, 2X/DAY
     Route: 055
     Dates: start: 20080328
  3. SALBUTAMOL [Concomitant]
     Indication: ASTHMA
     Dosage: 2 DF, AS NEEDED
     Route: 055
     Dates: start: 20040101

REACTIONS (3)
  - ANOREXIA [None]
  - DISORIENTATION [None]
  - FEELING ABNORMAL [None]
